FAERS Safety Report 14195489 (Version 2)
Quarter: 2017Q4

REPORT INFORMATION
  Report Type: Spontaneous
  Country: US (occurrence: US)
  Receive Date: 20171116
  Receipt Date: 20171121
  Transmission Date: 20180321
  Serious: Yes (Other)
  Sender: FDA-Public Use
  Company Number: US-BAYER-2017-221344

PATIENT
  Age: 19 Year
  Sex: Female

DRUGS (1)
  1. SKYLA [Suspect]
     Active Substance: LEVONORGESTREL
     Indication: CONTRACEPTION
     Dosage: 14 MCG/24HR, CONT
     Route: 015
     Dates: start: 20160803

REACTIONS (2)
  - Ectopic pregnancy with contraceptive device [None]
  - Drug ineffective [None]

NARRATIVE: CASE EVENT DATE: 20171031
